FAERS Safety Report 7980266-1 (Version None)
Quarter: 2011Q4

REPORT INFORMATION
  Report Type: 
  Country: None (occurrence: None)
  Receive Date: 20111214
  Receipt Date: 20111103
  Transmission Date: 20120403
  Serious: Yes (Hospitalization)
  Sender: FDA-Public Use
  Company Number: FR-AMGEN-FRASP2011016314

PATIENT
  Age: 52 Year
  Sex: Female

DRUGS (1)
  1. NEUPOGEN [Suspect]
     Indication: CHEMOTHERAPY
     Dosage: UNK
     Route: 042
     Dates: start: 20110209, end: 20110210

REACTIONS (6)
  - CHILLS [None]
  - TACHYCARDIA [None]
  - HYPOTENSION [None]
  - BONE PAIN [None]
  - CHEST PAIN [None]
  - OXYGEN SATURATION DECREASED [None]
